FAERS Safety Report 6045410-4 (Version None)
Quarter: 2009Q1

REPORT INFORMATION
  Report Type: 
  Country: None (occurrence: None)
  Receive Date: 20090121
  Receipt Date: 20090120
  Transmission Date: 20090719
  Serious: Yes (Hospitalization, Other)
  Sender: FDA-Public Use
  Company Number: US-PFIZER INC-2007104145

PATIENT
  Sex: Female
  Weight: 96.2 kg

DRUGS (4)
  1. CHANTIX [Suspect]
     Indication: SMOKING CESSATION THERAPY
     Dates: start: 20071101
  2. METFORMIN [Concomitant]
     Indication: DIABETES MELLITUS
  3. AMARYL [Concomitant]
     Indication: DIABETES MELLITUS
  4. PRILOSEC [Concomitant]
     Indication: GASTROOESOPHAGEAL REFLUX DISEASE

REACTIONS (6)
  - ABASIA [None]
  - DIZZINESS [None]
  - DYSKINESIA [None]
  - FALL [None]
  - INTESTINAL OBSTRUCTION [None]
  - MYALGIA [None]
